FAERS Safety Report 14106027 (Version 4)
Quarter: 2018Q1

REPORT INFORMATION
  Report Type: Report from Study
  Country: US (occurrence: US)
  Receive Date: 20171019
  Receipt Date: 20180207
  Transmission Date: 20180508
  Serious: Yes (Hospitalization, Other)
  Sender: FDA-Public Use
  Company Number: US-BRISTOL-MYERS SQUIBB COMPANY-BMS-2017-092816

PATIENT
  Age: 51 Year
  Sex: Female
  Weight: 73.75 kg

DRUGS (3)
  1. ENTINOSTAT [Suspect]
     Active Substance: ENTINOSTAT
     Indication: BREAST CANCER
     Dosage: 3 MG, UNK
     Route: 065
     Dates: start: 20170510
  2. NIVOLUMAB [Suspect]
     Active Substance: NIVOLUMAB
     Indication: BREAST CANCER
     Dosage: 3 MG/KG (223 MG), UNK
     Route: 065
     Dates: start: 20170524
  3. IPILIMUMAB [Suspect]
     Active Substance: IPILIMUMAB
     Indication: BREAST CANCER
     Dosage: 1 MG/KG, UNK
     Route: 065
     Dates: start: 20170524, end: 20170705

REACTIONS (8)
  - Hypocalcaemia [Recovered/Resolved]
  - Lipase increased [Recovering/Resolving]
  - Abdominal pain [Recovering/Resolving]
  - Amylase increased [Recovering/Resolving]
  - Diarrhoea [Recovered/Resolved]
  - Hypokalaemia [Recovered/Resolved]
  - Hypophosphataemia [Recovered/Resolved]
  - Clostridium difficile infection [Recovered/Resolved]

NARRATIVE: CASE EVENT DATE: 20171004
